FAERS Safety Report 4924274-3 (Version None)
Quarter: 2006Q1

REPORT INFORMATION
  Report Type: 
  Country: None (occurrence: None)
  Receive Date: 20060227
  Receipt Date: 20060218
  Transmission Date: 20060701
  Serious: Yes (Hospitalization)
  Sender: FDA-Public Use
  Company Number: JP-JNJFOC-20060202972

PATIENT
  Age: 71 Year
  Sex: Female

DRUGS (4)
  1. REMICADE [Suspect]
     Route: 042
  2. REMICADE [Suspect]
     Indication: RHEUMATOID ARTHRITIS
     Route: 042
  3. PYRAMIDE [Suspect]
     Indication: TUBERCULOSIS
  4. ISONIAZID [Concomitant]
     Indication: PROPHYLAXIS
     Route: 048

REACTIONS (3)
  - HEPATIC ENZYME INCREASED [None]
  - TUBERCULOSIS [None]
  - TUBERCULOUS PLEURISY [None]
